FAERS Safety Report 7623268-7 (Version None)
Quarter: 2011Q3

REPORT INFORMATION
  Report Type: 
  Country: None (occurrence: None)
  Receive Date: 20110720
  Receipt Date: 20110705
  Transmission Date: 20111222
  Serious: Yes (Hospitalization)
  Sender: FDA-Public Use
  Company Number: AR-SANOFI-AVENTIS-2011SA044213

PATIENT
  Age: 77 Year
  Sex: Female
  Weight: 78 kg

DRUGS (4)
  1. DRONEDARONE HCL [Suspect]
     Indication: ATRIAL FIBRILLATION
     Route: 048
     Dates: start: 20110202
  2. FUROSEMIDE [Concomitant]
  3. ASPIRIN [Concomitant]
  4. ENALAPRIL MALEATE [Concomitant]

REACTIONS (1)
  - ATRIAL FIBRILLATION [None]
